FAERS Safety Report 6191470-X (Version None)
Quarter: 2009Q2

REPORT INFORMATION
  Report Type: 
  Country: None (occurrence: None)
  Receive Date: 20090515
  Receipt Date: 20090506
  Transmission Date: 20091009
  Serious: Yes (Hospitalization)
  Sender: FDA-Public Use
  Company Number: FR-ELI_LILLY_AND_COMPANY-FR200905000970

PATIENT
  Age: 17 Year
  Sex: Male
  Weight: 100 kg

DRUGS (2)
  1. ZYPREXA [Suspect]
     Indication: PSYCHOTIC DISORDER
     Dosage: 7.5 MG, DAILY (1/D)
     Route: 048
  2. STABLON [Concomitant]
     Route: 048

REACTIONS (4)
  - BALANCE DISORDER [None]
  - HYPERGLYCAEMIA [None]
  - PARAESTHESIA [None]
  - POLYNEUROPATHY [None]
